FAERS Safety Report 21796001 (Version 25)
Quarter: 2025Q1

REPORT INFORMATION
  Report Type: Spontaneous
  Country: IN (occurrence: IN)
  Receive Date: 20221229
  Receipt Date: 20250325
  Transmission Date: 20250409
  Serious: Yes (Life-Threatening, Hospitalization, Other)
  Sender: PFIZER
  Company Number: IN-PFIZER INC-202101807146

PATIENT
  Age: 70 Year
  Sex: Female

DRUGS (22)
  1. PALBOCICLIB [Suspect]
     Active Substance: PALBOCICLIB
     Indication: Breast cancer female
     Route: 048
     Dates: start: 20211128
  2. PALBOCICLIB [Suspect]
     Active Substance: PALBOCICLIB
     Dosage: 125 MG, 1X/DAY
     Route: 048
  3. PALBOCICLIB [Suspect]
     Active Substance: PALBOCICLIB
     Dosage: 100 MG, 1X/DAY
     Route: 048
     Dates: start: 202202
  4. PALBOCICLIB [Suspect]
     Active Substance: PALBOCICLIB
     Route: 048
     Dates: start: 202212
  5. PALBOCICLIB [Suspect]
     Active Substance: PALBOCICLIB
     Route: 048
     Dates: start: 20241008
  6. LETROZOLE [Concomitant]
     Active Substance: LETROZOLE
     Dosage: 2.5 MG, 1X/DAY TO CONTINUE - AS PER PLAN
  7. CALCIUM CARBONATE\CHOLECALCIFEROL [Concomitant]
     Active Substance: CALCIUM CARBONATE\CHOLECALCIFEROL
     Dosage: 500 MG, 2X/DAY
  8. TRAMADOL [Concomitant]
     Active Substance: TRAMADOL
     Indication: Pain
     Dosage: 50 MG, 3X/DAY
  9. OROFER XT [Concomitant]
     Dosage: 1 DF (1 TAB), 1X/DAY TO CONTINUE X6 MONTHS
  10. PANTOPRAZOLE SODIUM [Concomitant]
     Active Substance: PANTOPRAZOLE SODIUM
     Dosage: 40 MG, 1X/DAY (EMPTY STOMACH)
  11. DOLO 650 [Concomitant]
     Dosage: 650 MG, 2X/DAY
  12. PALMIFLAM [Concomitant]
     Dosage: 1 DF (1 TAB), 2X/DAY
  13. SYMBAL [Concomitant]
     Dosage: 30 MG, 2X/DAY
  14. BETAMETHASONE VALERATE [Concomitant]
     Active Substance: BETAMETHASONE VALERATE
     Dosage: 40 MG, 1X/DAY (IN THE MORNING)
  15. PROLET [Concomitant]
     Dosage: 25 MG, 1X/DAY (AT BEDTIME)
  16. GABATOR NT [Concomitant]
     Dosage: 400/10 MG, 2X/DAY
  17. BENALGIS [Concomitant]
     Dosage: 100 MG, 1X/DAY
  18. PRAMIPEX [PRAMIPEXOLE DIHYDROCHLORIDE] [Concomitant]
     Dosage: 0.5 MG, 1X/DAY (AT BEDTIME)
  19. ADESAM [Concomitant]
     Dosage: 400 MG, 2X/DAY
  20. SPIRONOLACTONE\TORSEMIDE [Concomitant]
     Active Substance: SPIRONOLACTONE\TORSEMIDE
     Dosage: 5 MG, 1X/DAY
  21. RISPERIDONE [Concomitant]
     Active Substance: RISPERIDONE
     Dosage: 0.5 MG, 1X/DAY (AT BEDTIME)
  22. ENOXAPARIN SODIUM [Concomitant]
     Active Substance: ENOXAPARIN SODIUM
     Dosage: 60 MG, 1X/DAY-TO STOP AFTER VASCULAR SURGERY OPINION
     Route: 058

REACTIONS (42)
  - Typhoid fever [Unknown]
  - Pneumonia [Unknown]
  - Fracture [Unknown]
  - Hemiparesis [Unknown]
  - Pain in extremity [Unknown]
  - Sensory loss [Unknown]
  - Neuropathy peripheral [Unknown]
  - Anaemia [Not Recovered/Not Resolved]
  - Osteosclerosis [Unknown]
  - Gait inability [Unknown]
  - Rectal haemorrhage [Unknown]
  - Haemorrhoidal haemorrhage [Unknown]
  - Breast cancer female [Unknown]
  - Malignant neoplasm progression [Unknown]
  - Metastases to bone [Unknown]
  - Lymphocyte percentage decreased [Unknown]
  - Monocyte percentage increased [Unknown]
  - Mean cell volume increased [Unknown]
  - Mean cell haemoglobin increased [Unknown]
  - Back pain [Unknown]
  - Blood creatinine increased [Unknown]
  - Inflammation [Unknown]
  - Arthralgia [Not Recovered/Not Resolved]
  - Renal disorder [Unknown]
  - Oedema peripheral [Unknown]
  - Asthenia [Unknown]
  - Tooth disorder [Unknown]
  - Exostosis [Unknown]
  - Obstructive sleep apnoea syndrome [Unknown]
  - Pain in jaw [Unknown]
  - Rheumatoid factor increased [Unknown]
  - White blood cell count decreased [Unknown]
  - Neutrophil count decreased [Unknown]
  - Constipation [Unknown]
  - Eastern Cooperative Oncology Group performance status worsened [Not Recovered/Not Resolved]
  - Nocturia [Unknown]
  - Oedema [Unknown]
  - Klebsiella urinary tract infection [Unknown]
  - Stomatitis [Unknown]
  - C-reactive protein increased [Unknown]
  - Off label use [Unknown]
  - Pyrexia [Unknown]

NARRATIVE: CASE EVENT DATE: 20211128
